FAERS Safety Report 22618721 (Version 25)
Quarter: 2024Q1

REPORT INFORMATION
  Report Type: Report from Study
  Country: CN (occurrence: CN)
  Receive Date: 20230620
  Receipt Date: 20240325
  Transmission Date: 20240410
  Serious: Yes (Life-Threatening, Hospitalization)
  Sender: FDA-Public Use
  Company Number: CN-SA-SAC20230307001280

PATIENT
  Age: 60 Year
  Sex: Male
  Weight: 60 kg

DRUGS (138)
  1. ISATUXIMAB [Suspect]
     Active Substance: ISATUXIMAB
     Indication: Plasma cell myeloma refractory
     Dosage: 10 MG/KG
     Route: 042
     Dates: start: 20230223, end: 20230223
  2. ISATUXIMAB [Suspect]
     Active Substance: ISATUXIMAB
     Indication: Plasma cell myeloma
     Dosage: 10 MG/KG
     Route: 042
     Dates: start: 20230302, end: 20230302
  3. ISATUXIMAB [Suspect]
     Active Substance: ISATUXIMAB
     Dosage: 620 MG
     Route: 042
     Dates: start: 20230601, end: 20230601
  4. ISATUXIMAB [Suspect]
     Active Substance: ISATUXIMAB
     Dosage: 620 MG
     Route: 042
     Dates: start: 20230615, end: 20230615
  5. ISATUXIMAB [Suspect]
     Active Substance: ISATUXIMAB
     Dosage: 620 MG
     Route: 042
     Dates: start: 20230629, end: 20230629
  6. ISATUXIMAB [Suspect]
     Active Substance: ISATUXIMAB
     Dosage: 620 MG
     Route: 042
     Dates: start: 20230727, end: 20230727
  7. ISATUXIMAB [Suspect]
     Active Substance: ISATUXIMAB
     Dosage: 620 MG
     Route: 042
     Dates: start: 20230810, end: 20230810
  8. ISATUXIMAB [Suspect]
     Active Substance: ISATUXIMAB
     Dosage: 620 MG
     Route: 042
     Dates: start: 20230824, end: 20230824
  9. ISATUXIMAB [Suspect]
     Active Substance: ISATUXIMAB
     Dosage: 620 MG
     Route: 042
     Dates: start: 20230907, end: 20230907
  10. ISATUXIMAB [Suspect]
     Active Substance: ISATUXIMAB
     Dosage: 620 MG
     Route: 041
     Dates: start: 20231005, end: 20231005
  11. ISATUXIMAB [Suspect]
     Active Substance: ISATUXIMAB
     Dosage: 620 MG
     Route: 041
     Dates: start: 20231019, end: 20231019
  12. ISATUXIMAB [Suspect]
     Active Substance: ISATUXIMAB
     Dosage: 640 MG
     Route: 042
     Dates: start: 20231116, end: 20231116
  13. ISATUXIMAB [Suspect]
     Active Substance: ISATUXIMAB
     Dosage: 620 MG
     Route: 042
     Dates: start: 20231130, end: 20231130
  14. ISATUXIMAB [Suspect]
     Active Substance: ISATUXIMAB
     Dosage: 640 MG
     Route: 042
     Dates: start: 20240125, end: 20240125
  15. ISATUXIMAB [Suspect]
     Active Substance: ISATUXIMAB
     Dosage: UNK
  16. POMALIDOMIDE [Suspect]
     Active Substance: POMALIDOMIDE
     Indication: Plasma cell myeloma refractory
     Dosage: 4 MG
     Route: 048
     Dates: start: 20230223, end: 20230315
  17. POMALIDOMIDE [Suspect]
     Active Substance: POMALIDOMIDE
     Dosage: 4 MG
     Route: 048
     Dates: start: 20230323, end: 20230412
  18. POMALIDOMIDE [Suspect]
     Active Substance: POMALIDOMIDE
     Dosage: 4 MG
     Route: 048
     Dates: start: 20230518, end: 20230607
  19. POMALIDOMIDE [Suspect]
     Active Substance: POMALIDOMIDE
     Dosage: 4 MG
     Route: 048
     Dates: start: 20230615, end: 20230705
  20. POMALIDOMIDE [Suspect]
     Active Substance: POMALIDOMIDE
     Dosage: 4 MG
     Route: 048
     Dates: start: 20230713, end: 20230802
  21. POMALIDOMIDE [Suspect]
     Active Substance: POMALIDOMIDE
     Dosage: 4 MG
     Route: 048
     Dates: start: 20230810, end: 20230830
  22. POMALIDOMIDE [Suspect]
     Active Substance: POMALIDOMIDE
     Dosage: 4 MG
     Route: 048
     Dates: start: 20230907, end: 20230927
  23. POMALIDOMIDE [Suspect]
     Active Substance: POMALIDOMIDE
     Dosage: 4 MG
     Route: 048
     Dates: start: 20231005, end: 20231025
  24. POMALIDOMIDE [Suspect]
     Active Substance: POMALIDOMIDE
     Dosage: 4 MG
     Route: 048
     Dates: start: 20231102, end: 20231122
  25. POMALIDOMIDE [Suspect]
     Active Substance: POMALIDOMIDE
     Dosage: 4 MG
     Route: 048
     Dates: start: 20231130, end: 20231213
  26. POMALIDOMIDE [Suspect]
     Active Substance: POMALIDOMIDE
     Dosage: 4 MG
     Route: 048
     Dates: start: 20240111, end: 20240131
  27. DEXAMETHASONE [Suspect]
     Active Substance: DEXAMETHASONE
     Indication: Plasma cell myeloma refractory
     Dosage: 40 MG, QD
     Route: 042
     Dates: start: 20230223, end: 20230223
  28. DEXAMETHASONE [Suspect]
     Active Substance: DEXAMETHASONE
     Dosage: 40 MG, QD
     Route: 042
     Dates: start: 20230302, end: 20230302
  29. DEXAMETHASONE [Suspect]
     Active Substance: DEXAMETHASONE
     Dosage: 40 MG, QD
     Route: 042
     Dates: start: 20230309, end: 20230309
  30. DEXAMETHASONE [Suspect]
     Active Substance: DEXAMETHASONE
     Dosage: 40 MG, QD
     Route: 042
     Dates: start: 20230316, end: 20230316
  31. DEXAMETHASONE [Suspect]
     Active Substance: DEXAMETHASONE
     Dosage: 40 MG, QD
     Route: 042
     Dates: start: 20230518, end: 20230518
  32. DEXAMETHASONE [Suspect]
     Active Substance: DEXAMETHASONE
     Dosage: 40 MG, QD
     Route: 048
     Dates: start: 20230525, end: 20230525
  33. DEXAMETHASONE [Suspect]
     Active Substance: DEXAMETHASONE
     Dosage: 40 MG, QD
     Route: 042
     Dates: start: 20230601, end: 20230601
  34. DEXAMETHASONE [Suspect]
     Active Substance: DEXAMETHASONE
     Dosage: 40 MG, QD
     Route: 048
     Dates: start: 20230608, end: 20230608
  35. DEXAMETHASONE [Suspect]
     Active Substance: DEXAMETHASONE
     Dosage: 40 MG, QD
     Route: 048
     Dates: start: 20230629, end: 20230629
  36. DEXAMETHASONE [Suspect]
     Active Substance: DEXAMETHASONE
     Dosage: 40 MG, QD
     Route: 042
     Dates: start: 20230727, end: 20230727
  37. DEXAMETHASONE [Suspect]
     Active Substance: DEXAMETHASONE
     Dosage: 40 MG, QD
     Route: 048
     Dates: start: 20230803, end: 20230803
  38. DEXAMETHASONE [Suspect]
     Active Substance: DEXAMETHASONE
     Dosage: 40 MG, QD
     Route: 048
     Dates: start: 20230831, end: 20230831
  39. DEXAMETHASONE [Suspect]
     Active Substance: DEXAMETHASONE
     Dosage: 40 MG, QD
     Route: 042
     Dates: start: 20230807, end: 20230807
  40. DEXAMETHASONE [Suspect]
     Active Substance: DEXAMETHASONE
     Dosage: 40 MG, QD
     Route: 042
     Dates: start: 20231019, end: 20231019
  41. DEXAMETHASONE [Suspect]
     Active Substance: DEXAMETHASONE
     Dosage: 40 MG, QD
     Route: 048
     Dates: start: 20231026, end: 20231026
  42. DEXAMETHASONE [Suspect]
     Active Substance: DEXAMETHASONE
     Dosage: 40 MG, QD
     Route: 042
     Dates: start: 20231102, end: 20231102
  43. DEXAMETHASONE [Suspect]
     Active Substance: DEXAMETHASONE
     Dosage: 40 MG, QD
     Route: 048
     Dates: start: 20231109, end: 20231109
  44. DEXAMETHASONE [Suspect]
     Active Substance: DEXAMETHASONE
     Dosage: 40 MG, QD
     Route: 042
     Dates: start: 20231116, end: 20231116
  45. DEXAMETHASONE [Suspect]
     Active Substance: DEXAMETHASONE
     Dosage: 40 MG, QD
     Route: 048
     Dates: start: 20231123, end: 20231123
  46. DEXAMETHASONE [Suspect]
     Active Substance: DEXAMETHASONE
     Dosage: 40 MG
     Route: 042
     Dates: start: 20231130, end: 20231130
  47. DEXAMETHASONE [Suspect]
     Active Substance: DEXAMETHASONE
     Dosage: 40 MG
     Route: 042
     Dates: start: 20240125, end: 20240125
  48. DEXAMETHASONE [Suspect]
     Active Substance: DEXAMETHASONE
     Dosage: 40 MG
     Route: 048
     Dates: start: 20240201, end: 20240201
  49. PANTOPRAZOLE SODIUM [Concomitant]
     Active Substance: PANTOPRAZOLE SODIUM
     Indication: Prophylaxis
     Dosage: UNK
     Route: 048
     Dates: start: 20230223, end: 20230223
  50. PANTOPRAZOLE SODIUM [Concomitant]
     Active Substance: PANTOPRAZOLE SODIUM
     Dosage: UNK
     Route: 048
     Dates: start: 20230302, end: 20230302
  51. PANTOPRAZOLE SODIUM [Concomitant]
     Active Substance: PANTOPRAZOLE SODIUM
     Dosage: 40 MG, QD
     Route: 048
     Dates: start: 20230323, end: 20230323
  52. PANTOPRAZOLE SODIUM [Concomitant]
     Active Substance: PANTOPRAZOLE SODIUM
     Dosage: UNK
     Route: 048
     Dates: start: 20230601, end: 20230601
  53. PANTOPRAZOLE SODIUM [Concomitant]
     Active Substance: PANTOPRAZOLE SODIUM
     Dosage: UNK
     Route: 048
     Dates: start: 20230615, end: 20230615
  54. PANTOPRAZOLE SODIUM [Concomitant]
     Active Substance: PANTOPRAZOLE SODIUM
     Dosage: UNK
     Route: 048
     Dates: start: 20230629, end: 20230629
  55. PANTOPRAZOLE SODIUM [Concomitant]
     Active Substance: PANTOPRAZOLE SODIUM
     Dosage: UNK
     Route: 048
     Dates: start: 20230309, end: 20230309
  56. PANTOPRAZOLE SODIUM [Concomitant]
     Active Substance: PANTOPRAZOLE SODIUM
     Dosage: UNK
     Route: 048
     Dates: start: 20230316, end: 20230316
  57. PANTOPRAZOLE SODIUM [Concomitant]
     Active Substance: PANTOPRAZOLE SODIUM
     Dosage: UNK
     Route: 048
     Dates: start: 20230323, end: 20230323
  58. PANTOPRAZOLE SODIUM [Concomitant]
     Active Substance: PANTOPRAZOLE SODIUM
     Dosage: UNK
     Route: 048
     Dates: start: 20230406, end: 20230406
  59. PANTOPRAZOLE SODIUM [Concomitant]
     Active Substance: PANTOPRAZOLE SODIUM
     Dosage: UNK
     Route: 048
     Dates: start: 20230420, end: 20230420
  60. PANTOPRAZOLE SODIUM [Concomitant]
     Active Substance: PANTOPRAZOLE SODIUM
     Dosage: UNK
     Route: 048
     Dates: start: 20230504, end: 20230504
  61. PANTOPRAZOLE SODIUM [Concomitant]
     Active Substance: PANTOPRAZOLE SODIUM
     Dosage: UNK
     Route: 048
     Dates: start: 20230518, end: 20230518
  62. PANTOPRAZOLE SODIUM [Concomitant]
     Active Substance: PANTOPRAZOLE SODIUM
     Dosage: UNK
     Route: 048
     Dates: start: 20230601, end: 20230601
  63. PANTOPRAZOLE SODIUM [Concomitant]
     Active Substance: PANTOPRAZOLE SODIUM
     Dosage: UNK
     Route: 048
     Dates: start: 20230615, end: 20230615
  64. PANTOPRAZOLE SODIUM [Concomitant]
     Active Substance: PANTOPRAZOLE SODIUM
     Dosage: UNK
     Route: 048
     Dates: start: 20230629, end: 20230629
  65. PANTOPRAZOLE SODIUM [Concomitant]
     Active Substance: PANTOPRAZOLE SODIUM
     Dosage: UNK
     Route: 048
     Dates: start: 20230713, end: 20230713
  66. PANTOPRAZOLE SODIUM [Concomitant]
     Active Substance: PANTOPRAZOLE SODIUM
     Dosage: UNK
     Route: 048
     Dates: start: 20230727, end: 20230727
  67. PANTOPRAZOLE SODIUM [Concomitant]
     Active Substance: PANTOPRAZOLE SODIUM
     Dosage: UNK
     Route: 048
     Dates: start: 20230810, end: 20230810
  68. PANTOPRAZOLE SODIUM [Concomitant]
     Active Substance: PANTOPRAZOLE SODIUM
     Dosage: UNK
     Route: 048
     Dates: start: 20230824, end: 20230824
  69. PANTOPRAZOLE SODIUM [Concomitant]
     Active Substance: PANTOPRAZOLE SODIUM
     Dosage: UNK
     Route: 048
     Dates: start: 20230324, end: 20230324
  70. PANTOPRAZOLE SODIUM [Concomitant]
     Active Substance: PANTOPRAZOLE SODIUM
     Dosage: UNK
     Route: 048
     Dates: start: 20230907, end: 20230907
  71. PANTOPRAZOLE SODIUM [Concomitant]
     Active Substance: PANTOPRAZOLE SODIUM
     Dosage: UNK
     Route: 048
     Dates: start: 20230921, end: 20230921
  72. PANTOPRAZOLE SODIUM [Concomitant]
     Active Substance: PANTOPRAZOLE SODIUM
     Dosage: UNK
     Route: 048
     Dates: start: 20231005, end: 20231005
  73. PANTOPRAZOLE SODIUM [Concomitant]
     Active Substance: PANTOPRAZOLE SODIUM
     Dosage: UNK
     Route: 048
     Dates: start: 20231019, end: 20231019
  74. PANTOPRAZOLE SODIUM [Concomitant]
     Active Substance: PANTOPRAZOLE SODIUM
     Dosage: UNK
     Route: 048
     Dates: start: 20231116, end: 20231116
  75. PANTOPRAZOLE SODIUM [Concomitant]
     Active Substance: PANTOPRAZOLE SODIUM
     Dosage: UNK
     Route: 048
     Dates: start: 20231130, end: 20231130
  76. PANTOPRAZOLE SODIUM [Concomitant]
     Active Substance: PANTOPRAZOLE SODIUM
     Dosage: 40 MG
     Route: 048
     Dates: start: 20240111, end: 20240111
  77. PANTOPRAZOLE SODIUM [Concomitant]
     Active Substance: PANTOPRAZOLE SODIUM
     Dosage: 40 MG
     Route: 048
     Dates: start: 20240125, end: 20240125
  78. ACETAMINOPHEN [Concomitant]
     Active Substance: ACETAMINOPHEN
     Indication: Prophylaxis
     Dosage: UNK
     Route: 048
     Dates: start: 20230223, end: 20230223
  79. ACETAMINOPHEN [Concomitant]
     Active Substance: ACETAMINOPHEN
     Dosage: UNK
     Route: 048
     Dates: start: 20230302, end: 20230302
  80. ACETAMINOPHEN [Concomitant]
     Active Substance: ACETAMINOPHEN
     Dosage: UNK
     Route: 048
     Dates: start: 20230309, end: 20230309
  81. ACETAMINOPHEN [Concomitant]
     Active Substance: ACETAMINOPHEN
     Dosage: UNK
     Route: 048
     Dates: start: 20230316, end: 20230316
  82. MONTELUKAST SODIUM [Concomitant]
     Active Substance: MONTELUKAST SODIUM
     Indication: Prophylaxis
     Dosage: UNK
     Route: 048
     Dates: start: 20230223, end: 20230223
  83. MONTELUKAST SODIUM [Concomitant]
     Active Substance: MONTELUKAST SODIUM
     Dosage: UNK
     Route: 048
     Dates: start: 20230302, end: 20230302
  84. MONTELUKAST SODIUM [Concomitant]
     Active Substance: MONTELUKAST SODIUM
     Dosage: UNK
     Route: 048
     Dates: start: 20230309, end: 20230309
  85. MONTELUKAST SODIUM [Concomitant]
     Active Substance: MONTELUKAST SODIUM
     Dosage: UNK
     Route: 048
     Dates: start: 20230316, end: 20230316
  86. DIPHENHYDRAMINE HYDROCHLORIDE [Concomitant]
     Active Substance: DIPHENHYDRAMINE HYDROCHLORIDE
     Indication: Prophylaxis
     Dosage: UNK
     Route: 030
     Dates: start: 20230223, end: 20230223
  87. DIPHENHYDRAMINE HYDROCHLORIDE [Concomitant]
     Active Substance: DIPHENHYDRAMINE HYDROCHLORIDE
     Dosage: UNK
     Route: 030
     Dates: start: 20230302, end: 20230302
  88. DIPHENHYDRAMINE HYDROCHLORIDE [Concomitant]
     Active Substance: DIPHENHYDRAMINE HYDROCHLORIDE
     Dosage: UNK
     Route: 030
     Dates: start: 20230309, end: 20230309
  89. DIPHENHYDRAMINE HYDROCHLORIDE [Concomitant]
     Active Substance: DIPHENHYDRAMINE HYDROCHLORIDE
     Dosage: UNK
     Route: 030
     Dates: start: 20230316, end: 20230316
  90. BORTEZOMIB [Concomitant]
     Active Substance: BORTEZOMIB
     Indication: Plasma cell myeloma
     Dosage: UNK
     Dates: start: 20191226
  91. BORTEZOMIB [Concomitant]
     Active Substance: BORTEZOMIB
     Dosage: UNK
     Dates: end: 20230103
  92. BORTEZOMIB [Concomitant]
     Active Substance: BORTEZOMIB
     Dosage: UNK
     Dates: end: 2023
  93. LENALIDOMIDE [Concomitant]
     Active Substance: LENALIDOMIDE
     Indication: Plasma cell myeloma
     Dosage: UNK
     Dates: end: 20230103
  94. LENALIDOMIDE [Concomitant]
     Active Substance: LENALIDOMIDE
     Dosage: UNK
     Dates: end: 2023
  95. CYCLOPHOSPHAMIDE [Concomitant]
     Active Substance: CYCLOPHOSPHAMIDE
     Indication: Plasma cell myeloma
     Dosage: UNK
     Dates: start: 20191226
  96. METOPROLOL TARTRATE [Concomitant]
     Active Substance: METOPROLOL TARTRATE
     Dosage: UNK
     Route: 048
     Dates: start: 20230322, end: 20230407
  97. POTASSIUM CHLORIDE [Concomitant]
     Active Substance: POTASSIUM CHLORIDE
     Dosage: UNK
     Route: 017
     Dates: start: 20230223, end: 20230224
  98. POTASSIUM CHLORIDE [Concomitant]
     Active Substance: POTASSIUM CHLORIDE
     Dosage: UNK
     Route: 042
     Dates: start: 20230227, end: 20230228
  99. POTASSIUM CHLORIDE [Concomitant]
     Active Substance: POTASSIUM CHLORIDE
     Dosage: UNK
     Route: 041
     Dates: start: 20230301, end: 20230301
  100. SODIUM BICARBONATE [Concomitant]
     Active Substance: SODIUM BICARBONATE
     Indication: Prophylaxis
     Dosage: UNK
     Route: 017
     Dates: start: 20230223, end: 20230224
  101. SODIUM BICARBONATE [Concomitant]
     Active Substance: SODIUM BICARBONATE
     Dosage: UNK
     Route: 017
     Dates: start: 20230228, end: 20230228
  102. ZOLEDRONIC ACID [Concomitant]
     Active Substance: ZOLEDRONIC ACID
     Dosage: UNK
     Route: 041
     Dates: start: 20230228, end: 20230228
  103. RECOMBINANT HUMAN THROMBOPOIETIN [Concomitant]
     Active Substance: RECOMBINANT HUMAN THROMBOPOIETIN
     Dosage: UNK
     Route: 058
     Dates: start: 20230307, end: 20230317
  104. LORATADINE [Concomitant]
     Active Substance: LORATADINE
     Dosage: UNK
     Route: 048
     Dates: start: 20230504, end: 20230513
  105. LORATADINE [Concomitant]
     Active Substance: LORATADINE
     Dosage: UNK
     Route: 048
     Dates: start: 20230226, end: 20230303
  106. LORATADINE [Concomitant]
     Active Substance: LORATADINE
     Dosage: UNK
     Route: 048
     Dates: start: 20231116, end: 20231125
  107. PHOSPHOLIPID [Concomitant]
     Active Substance: PHOSPHOLIPID
     Dosage: UNK
     Route: 048
     Dates: start: 20230504, end: 20230509
  108. AVATROMBOPAG [Concomitant]
     Active Substance: AVATROMBOPAG
     Dosage: 40 MG
     Route: 048
     Dates: start: 20230227, end: 20230320
  109. LIDOCAINE HYDROCHLORIDE [Concomitant]
     Active Substance: LIDOCAINE HYDROCHLORIDE
     Dosage: 5 ML
     Route: 058
     Dates: start: 20230220, end: 20230220
  110. LIDOCAINE HYDROCHLORIDE [Concomitant]
     Active Substance: LIDOCAINE HYDROCHLORIDE
     Dosage: 5 ML
     Route: 058
     Dates: start: 20230222, end: 20230222
  111. LIDOCAINE HYDROCHLORIDE [Concomitant]
     Active Substance: LIDOCAINE HYDROCHLORIDE
     Dosage: UNK
     Route: 058
     Dates: start: 20230518, end: 20230518
  112. LIDOCAINE HYDROCHLORIDE [Concomitant]
     Active Substance: LIDOCAINE HYDROCHLORIDE
     Dosage: UNK
     Route: 058
     Dates: start: 20230810, end: 20230810
  113. GRANULOCYTE COLONY-STIMULATING FACTOR NOS [Concomitant]
     Active Substance: GRANULOCYTE COLONY-STIMULATING FACTOR NOS
     Dosage: UNK
     Route: 058
     Dates: start: 20230226, end: 20230301
  114. GRANULOCYTE COLONY-STIMULATING FACTOR NOS [Concomitant]
     Active Substance: GRANULOCYTE COLONY-STIMULATING FACTOR NOS
     Dosage: UNK
     Route: 058
     Dates: start: 20230303, end: 20230303
  115. GRANULOCYTE COLONY-STIMULATING FACTOR NOS [Concomitant]
     Active Substance: GRANULOCYTE COLONY-STIMULATING FACTOR NOS
     Dosage: UNK
     Route: 058
     Dates: start: 20230306, end: 20230315
  116. GRANULOCYTE COLONY-STIMULATING FACTOR NOS [Concomitant]
     Active Substance: GRANULOCYTE COLONY-STIMULATING FACTOR NOS
     Dosage: UNK
     Route: 058
     Dates: start: 20230420, end: 20230420
  117. GRANULOCYTE COLONY-STIMULATING FACTOR NOS [Concomitant]
     Active Substance: GRANULOCYTE COLONY-STIMULATING FACTOR NOS
     Dosage: UNK
     Route: 058
     Dates: start: 20230518, end: 20230518
  118. GRANULOCYTE COLONY-STIMULATING FACTOR NOS [Concomitant]
     Active Substance: GRANULOCYTE COLONY-STIMULATING FACTOR NOS
     Dosage: UNK
     Route: 058
     Dates: start: 20230221, end: 20230222
  119. GRANULOCYTE COLONY-STIMULATING FACTOR NOS [Concomitant]
     Active Substance: GRANULOCYTE COLONY-STIMULATING FACTOR NOS
     Dosage: UNK
     Route: 058
     Dates: start: 20231130, end: 20231130
  120. GRANULOCYTE COLONY-STIMULATING FACTOR NOS [Concomitant]
     Active Substance: GRANULOCYTE COLONY-STIMULATING FACTOR NOS
     Dosage: 400 UG
     Route: 058
     Dates: start: 20240201, end: 20240201
  121. CALAMINE [Concomitant]
     Active Substance: CALAMINE\FERRIC OXIDE RED\ZINC OXIDE
     Dosage: UNK
     Route: 065
     Dates: start: 20230226, end: 20230303
  122. SODIUM CHLORIDE [Concomitant]
     Active Substance: SODIUM CHLORIDE
     Dosage: 100 ML
     Route: 041
     Dates: start: 20230228, end: 20230228
  123. LACTULOSE [Concomitant]
     Active Substance: LACTULOSE
     Dosage: UNK
     Route: 048
     Dates: start: 20230313, end: 20230316
  124. GLYCYRRHIZA [Concomitant]
     Active Substance: LICORICE
     Dosage: UNK
     Route: 048
     Dates: start: 20230316, end: 20230319
  125. TRAMADOL HYDROCHLORIDE SUSTAINED RELEASE TABLETS (II) [Concomitant]
     Dosage: UNK
     Route: 048
     Dates: start: 20230319, end: 20230320
  126. PEGYLATED RECOMBINANT HUMAN GRANULOCYTE COLONY STIMULATING FACTOR [Concomitant]
     Dosage: UNK
     Route: 058
     Dates: start: 20230907, end: 20230907
  127. LEUCOGEN [Concomitant]
     Active Substance: LEUCOGEN
     Indication: Prophylaxis
     Dosage: UNK
     Route: 048
     Dates: start: 20230713, end: 20230728
  128. LEUCOGEN [Concomitant]
     Active Substance: LEUCOGEN
     Dosage: UNK
     Route: 048
     Dates: start: 20230921, end: 20231006
  129. LEUCOGEN [Concomitant]
     Active Substance: LEUCOGEN
     Dosage: UNK
     Route: 048
     Dates: start: 20231130, end: 20231231
  130. DEXAMETHASONE [Concomitant]
     Active Substance: DEXAMETHASONE
     Dosage: UNK
     Dates: start: 20191226
  131. DEXAMETHASONE [Concomitant]
     Active Substance: DEXAMETHASONE
     Dosage: UNK
     Dates: end: 2023
  132. NITROGLYCERIN [Concomitant]
     Active Substance: NITROGLYCERIN
     Dosage: 0.5 MG
     Route: 060
     Dates: start: 20231214, end: 20231214
  133. NITROGLYCERIN [Concomitant]
     Active Substance: NITROGLYCERIN
     Dosage: 0.5 MG
     Route: 060
     Dates: start: 20231215, end: 20231215
  134. ROSUVASTATIN CALCIUM [Concomitant]
     Active Substance: ROSUVASTATIN CALCIUM
     Dosage: 10 MG
     Route: 048
     Dates: start: 20231214
  135. CLOPIDOGREL BISULFATE [Concomitant]
     Active Substance: CLOPIDOGREL BISULFATE
     Dosage: 75 MG
     Route: 048
     Dates: start: 20231214, end: 20240110
  136. ASPIRIN [Concomitant]
     Active Substance: ASPIRIN
     Dosage: 0.1 G
     Route: 048
     Dates: start: 20231214
  137. HUMAN IMMUNOGLOBULIN G [Concomitant]
     Active Substance: HUMAN IMMUNOGLOBULIN G
     Dosage: 5 G
     Route: 041
     Dates: start: 20240207, end: 20240207
  138. ISOSORBIDE MONONITRATE [Concomitant]
     Active Substance: ISOSORBIDE MONONITRATE
     Dosage: 100 ML
     Route: 048
     Dates: start: 20240208

REACTIONS (44)
  - Neutrophil count decreased [Recovered/Resolved]
  - Acute coronary syndrome [Not Recovered/Not Resolved]
  - White blood cell count decreased [Recovered/Resolved]
  - White blood cell count decreased [Recovered/Resolved]
  - White blood cell count decreased [Recovered/Resolved]
  - White blood cell count decreased [Recovered/Resolved]
  - White blood cell count decreased [Recovered/Resolved]
  - White blood cell count decreased [Recovered/Resolved]
  - Pruritus [Recovered/Resolved]
  - Pruritus [Recovered/Resolved]
  - Hepatic function abnormal [Recovered/Resolved]
  - Urinary tract infection [Recovered/Resolved]
  - Upper respiratory tract infection [Recovered/Resolved]
  - Anaemia [Recovered/Resolved]
  - Platelet count decreased [Recovered/Resolved]
  - Neutrophil count decreased [Recovered/Resolved]
  - Neutrophil count decreased [Recovered/Resolved]
  - Neutrophil count decreased [Recovered/Resolved]
  - Neutrophil count decreased [Recovered/Resolved]
  - Neutrophil count decreased [Recovered/Resolved]
  - Hypoproteinaemia [Recovered/Resolved]
  - Hypocalcaemia [Recovered/Resolved]
  - Diarrhoea [Recovered/Resolved]
  - Constipation [Recovered/Resolved]
  - Hypokalaemia [Recovered/Resolved]
  - Platelet count decreased [Recovered/Resolved]
  - Neutrophil count decreased [Recovered/Resolved]
  - Platelet count decreased [Recovered/Resolved]
  - White blood cell count decreased [Recovered/Resolved]
  - Hypoproteinaemia [Recovered/Resolved]
  - Diarrhoea [Recovered/Resolved]
  - Neutrophil count decreased [Recovered/Resolved]
  - Platelet count decreased [Recovered/Resolved]
  - Platelet count decreased [Recovered/Resolved]
  - Neutrophil count decreased [Recovered/Resolved]
  - Pruritus [Recovered/Resolved]
  - Hypoproteinaemia [Recovered/Resolved]
  - Neutrophil count decreased [Recovered/Resolved]
  - Hypoproteinaemia [Recovered/Resolved]
  - White blood cell count decreased [Recovered/Resolved]
  - Platelet count decreased [Recovered/Resolved]
  - Neutrophil count decreased [Recovered/Resolved]
  - White blood cell count decreased [Recovered/Resolved]
  - Platelet count decreased [Recovered/Resolved]

NARRATIVE: CASE EVENT DATE: 20230223
